FAERS Safety Report 17962748 (Version 3)
Quarter: 2020Q3

REPORT INFORMATION
  Report Type: Other
  Country: US (occurrence: US)
  Receive Date: 20200630
  Receipt Date: 20200824
  Transmission Date: 20201103
  Serious: Yes (Life-Threatening, Hospitalization)
  Sender: FDA-Public Use
  Company Number: US-ROCHE-2633715

PATIENT
  Age: 65 Year
  Sex: Female
  Weight: 138.5 kg

DRUGS (14)
  1. ACTEMRA [Suspect]
     Active Substance: TOCILIZUMAB
     Indication: ANAEMIA
  2. ACTEMRA [Suspect]
     Active Substance: TOCILIZUMAB
     Indication: HYPERTENSION
  3. ACTEMRA [Suspect]
     Active Substance: TOCILIZUMAB
     Indication: POLYMYALGIA RHEUMATICA
     Route: 058
     Dates: start: 20200409
  4. ACTEMRA [Suspect]
     Active Substance: TOCILIZUMAB
     Indication: DIABETES INSIPIDUS
  5. ACTEMRA [Suspect]
     Active Substance: TOCILIZUMAB
     Indication: HYPERLIPIDAEMIA
  6. AMLODIPINE [Concomitant]
     Active Substance: AMLODIPINE BESYLATE
  7. ACTEMRA [Suspect]
     Active Substance: TOCILIZUMAB
     Indication: OSTEOARTHRITIS
  8. ACTEMRA [Suspect]
     Active Substance: TOCILIZUMAB
     Indication: CARDIOMYOPATHY
  9. ACTEMRA [Suspect]
     Active Substance: TOCILIZUMAB
     Indication: FIBROMYALGIA
  10. LOSARTAN. [Concomitant]
     Active Substance: LOSARTAN
  11. WARFARIN [Concomitant]
     Active Substance: WARFARIN
  12. ATORVASTATIN [Concomitant]
     Active Substance: ATORVASTATIN
  13. METOPROLOL TARTRATE. [Concomitant]
     Active Substance: METOPROLOL TARTRATE
  14. FUROSEMIDE. [Concomitant]
     Active Substance: FUROSEMIDE

REACTIONS (4)
  - Gastrointestinal haemorrhage [Unknown]
  - Off label use [Unknown]
  - Intentional product use issue [Unknown]
  - Epistaxis [Unknown]

NARRATIVE: CASE EVENT DATE: 20200610
